FAERS Safety Report 14949282 (Version 2)
Quarter: 2018Q2

REPORT INFORMATION
  Report Type: Report from Study
  Country: DE (occurrence: DE)
  Receive Date: 20180529
  Receipt Date: 20180605
  Transmission Date: 20180711
  Serious: Yes (Death, Hospitalization, Disabling, Other)
  Sender: FDA-Public Use
  Company Number: DE-MYLANLABS-2018M1033997

PATIENT
  Age: 60 Year
  Sex: Female
  Weight: 57 kg

DRUGS (35)
  1. CAPECITABINE. [Suspect]
     Active Substance: CAPECITABINE
     Dosage: ON D1 - D14 OF EACH CYCLE
     Route: 048
  2. CAPECITABINE. [Suspect]
     Active Substance: CAPECITABINE
     Dosage: 3300 MG, UNK
     Route: 048
     Dates: start: 20131127, end: 20131210
  3. CLINDASOL                          /00166002/ [Concomitant]
     Active Substance: CLINDAMYCIN HYDROCHLORIDE
     Indication: TOOTHACHE
     Route: 048
  4. CAPECITABINE. [Suspect]
     Active Substance: CAPECITABINE
     Dosage: 1600 MG, UNK
     Route: 048
     Dates: start: 20140402, end: 20140415
  5. CAPECITABINE. [Suspect]
     Active Substance: CAPECITABINE
     Dosage: 1600 MG, UNK
     Route: 048
  6. CAPECITABINE. [Suspect]
     Active Substance: CAPECITABINE
     Dosage: 3300 MG, UNK
     Route: 048
     Dates: start: 20130703, end: 20130716
  7. CAPECITABINE. [Suspect]
     Active Substance: CAPECITABINE
     Dosage: 1600 MG, UNK
     Route: 048
     Dates: start: 20140129, end: 20140211
  8. VITAMIN B6 [Concomitant]
     Active Substance: PYRIDOXINE HYDROCHLORIDE
     Indication: PRODUCT USED FOR UNKNOWN INDICATION
  9. CAPECITABINE. [Suspect]
     Active Substance: CAPECITABINE
     Indication: BREAST CANCER
     Dosage: ON D1 - D14 OF EACH CYCLE
     Route: 048
  10. CAPECITABINE. [Suspect]
     Active Substance: CAPECITABINE
     Dosage: ON D1 - D14 OF EACH CYCLE
     Route: 048
  11. CAPECITABINE. [Suspect]
     Active Substance: CAPECITABINE
     Dosage: 1600 MG, UNK
     Route: 048
     Dates: start: 20140108, end: 20140121
  12. IBUFLAM                            /00109201/ [Concomitant]
     Active Substance: IBUPROFEN
     Indication: NEURITIS
     Route: 048
  13. CAPECITABINE. [Suspect]
     Active Substance: CAPECITABINE
     Dosage: 1000 MG/M2, UNK
     Route: 048
     Dates: start: 20130501
  14. CAPECITABINE. [Suspect]
     Active Substance: CAPECITABINE
     Dosage: 3300 MG, UNK
     Route: 048
     Dates: start: 20130724, end: 20130806
  15. CAPECITABINE. [Suspect]
     Active Substance: CAPECITABINE
     Dosage: 3300 MG, UNK
     Route: 048
     Dates: start: 20130814, end: 20130827
  16. CAPECITABINE. [Suspect]
     Active Substance: CAPECITABINE
     Dosage: 3300 MG, UNK
     Route: 048
     Dates: start: 20130612, end: 20130625
  17. RANITIDIN [Concomitant]
     Active Substance: RANITIDINE HYDROCHLORIDE
     Indication: PROPHYLAXIS AGAINST GASTROINTESTINAL ULCER
  18. MORPHIN                            /00036302/ [Concomitant]
     Active Substance: MORPHINE SULFATE
     Indication: PRODUCT USED FOR UNKNOWN INDICATION
  19. OMEP                               /00661201/ [Concomitant]
     Active Substance: OMEPRAZOLE
     Indication: DYSPEPSIA
     Route: 048
  20. CAPECITABINE. [Suspect]
     Active Substance: CAPECITABINE
     Dosage: 3300 MG, UNK
     Route: 048
     Dates: start: 20130904, end: 20130917
  21. CAPECITABINE. [Suspect]
     Active Substance: CAPECITABINE
     Dosage: 3300 MG, UNK
     Route: 048
     Dates: start: 20130522, end: 20130604
  22. CAPECITABINE. [Suspect]
     Active Substance: CAPECITABINE
     Dosage: 1600 MG, UNK
     Route: 048
     Dates: start: 20140423, end: 20140506
  23. CAPECITABINE. [Suspect]
     Active Substance: CAPECITABINE
     Dosage: 3300 MG, UNK
     Route: 048
     Dates: start: 20130925, end: 20131008
  24. CAPECITABINE. [Suspect]
     Active Substance: CAPECITABINE
     Dosage: 1600 MG, UNK
     Route: 048
     Dates: start: 20140312, end: 20140325
  25. CAPECITABINE. [Suspect]
     Active Substance: CAPECITABINE
     Dosage: 3300 MG, UNK
     Route: 048
     Dates: start: 20131016, end: 20131029
  26. BEVACIZUMAB. [Suspect]
     Active Substance: BEVACIZUMAB
     Dosage: 900 MG, UNK
     Route: 042
     Dates: start: 20140502, end: 20140502
  27. BEVACIZUMAB. [Suspect]
     Active Substance: BEVACIZUMAB
     Dosage: 855 MG, UNK
     Route: 042
     Dates: start: 20130513, end: 20130513
  28. CAPECITABINE. [Suspect]
     Active Substance: CAPECITABINE
     Dosage: 1600 MG, UNK
     Route: 048
  29. CAPECITABINE. [Suspect]
     Active Substance: CAPECITABINE
     Dosage: 1600 MG, UNK
     Route: 048
     Dates: start: 20140219, end: 20140304
  30. CAPECITABINE. [Suspect]
     Active Substance: CAPECITABINE
     Dosage: 3300 MG, UNK
     Route: 048
     Dates: start: 20131106, end: 20131119
  31. BEVACIZUMAB. [Suspect]
     Active Substance: BEVACIZUMAB
     Indication: BREAST CANCER
     Dosage: 750 MG, UNK
     Route: 042
  32. BEVACIZUMAB. [Suspect]
     Active Substance: BEVACIZUMAB
     Dosage: 750 MG, UNK
     Route: 042
     Dates: start: 20130904, end: 20130904
  33. BEVACIZUMAB. [Suspect]
     Active Substance: BEVACIZUMAB
     Dosage: 840 MG, UNK
     Route: 042
     Dates: start: 20130826, end: 20130826
  34. LETROZOLE. [Concomitant]
     Active Substance: LETROZOLE
     Indication: BREAST CANCER METASTATIC
     Route: 048
  35. NOVALGIN                           /00169801/ [Concomitant]
     Active Substance: ACETAMINOPHEN\CAFFEINE\PROPYPHENAZONE
     Indication: NEURITIS
     Dosage: 500 MG, UNK
     Route: 048

REACTIONS (11)
  - Metastases to central nervous system [Unknown]
  - Malignant pleural effusion [Unknown]
  - Metastases to lymph nodes [Not Recovered/Not Resolved]
  - Palmar-plantar erythrodysaesthesia syndrome [Recovered/Resolved]
  - Multiple organ dysfunction syndrome [Fatal]
  - Paresis [Not Recovered/Not Resolved]
  - Metastases to bone [Unknown]
  - Dyspnoea [Recovered/Resolved]
  - Cardiac failure [Fatal]
  - Metastases to lung [Unknown]
  - Dysphonia [Not Recovered/Not Resolved]

NARRATIVE: CASE EVENT DATE: 20130925
